FAERS Safety Report 15510724 (Version 1)
Quarter: 2018Q4

REPORT INFORMATION
  Report Type: Spontaneous
  Country: US (occurrence: US)
  Receive Date: 20181010
  Receipt Date: 20181010
  Transmission Date: 20190205
  Serious: No
  Sender: FDA-Public Use
  Company Number: None

PATIENT
  Age: 65 Year
  Sex: Female

DRUGS (1)
  1. COPAXONE [Suspect]
     Active Substance: GLATIRAMER ACETATE
     Dates: start: 20180207, end: 20180905

REACTIONS (8)
  - Pyrexia [None]
  - Viral infection [None]
  - Chills [None]
  - Bladder disorder [None]
  - Vomiting [None]
  - Groin pain [None]
  - Oral herpes [None]
  - Back pain [None]

NARRATIVE: CASE EVENT DATE: 20181008
